FAERS Safety Report 19389588 (Version 2)
Quarter: 2021Q3

REPORT INFORMATION
  Report Type: Spontaneous
  Country: US (occurrence: US)
  Receive Date: 20210608
  Receipt Date: 20210826
  Transmission Date: 20211014
  Serious: Yes (Hospitalization)
  Sender: FDA-Public Use
  Company Number: US-PFIZER INC-2021619174

PATIENT
  Age: 22 Year
  Sex: Male

DRUGS (3)
  1. XELJANZ [Suspect]
     Active Substance: TOFACITINIB CITRATE
     Indication: COLITIS ULCERATIVE
     Dosage: 10 MG, 3X/DAY
     Route: 048
  2. XELJANZ [Suspect]
     Active Substance: TOFACITINIB CITRATE
     Dosage: 10 MG, 2X/DAY
     Route: 048
     Dates: start: 20210522
  3. PREDNISONE. [Concomitant]
     Active Substance: PREDNISONE
     Dosage: UNK (TAPER)

REACTIONS (6)
  - Sleep disorder [Unknown]
  - Frequent bowel movements [Unknown]
  - Off label use [Unknown]
  - Condition aggravated [Unknown]
  - Flatulence [Unknown]
  - Prescribed overdose [Unknown]

NARRATIVE: CASE EVENT DATE: 2021
